FAERS Safety Report 4359935-0 (Version None)
Quarter: 2004Q2

REPORT INFORMATION
  Report Type: 
  Country: None (occurrence: None)
  Receive Date: 20040518
  Receipt Date: 20040511
  Transmission Date: 20050107
  Serious: Yes (Death, Hospitalization, Disabling)
  Sender: FDA-Public Use
  Company Number: CM-MERCK-0405USA00668

PATIENT
  Age: 34 Year
  Sex: Male

DRUGS (1)
  1. STROMECTOL [Suspect]
     Route: 048
     Dates: start: 20040430, end: 20040430

REACTIONS (9)
  - ALCOHOL USE [None]
  - ASTHENIA [None]
  - COMA [None]
  - COUGH [None]
  - DEATH [None]
  - DECUBITUS ULCER [None]
  - GAIT DISTURBANCE [None]
  - INFECTION [None]
  - VERTIGO [None]
